FAERS Safety Report 18599379 (Version 5)
Quarter: 2022Q1

REPORT INFORMATION
  Report Type: Report from Study
  Country: US (occurrence: US)
  Receive Date: 20201210
  Receipt Date: 20220329
  Transmission Date: 20220423
  Serious: Yes (Other)
  Sender: FDA-Public Use
  Company Number: NVSC2020US325293

PATIENT
  Sex: Male

DRUGS (2)
  1. COSENTYX [Suspect]
     Active Substance: SECUKINUMAB
     Indication: Psoriasis
     Dosage: UNK UNK, QW
     Route: 058
     Dates: start: 2017, end: 2020
  2. COSENTYX [Suspect]
     Active Substance: SECUKINUMAB
     Indication: Psoriatic arthropathy
     Dosage: UNK UNK, QW (RESTARTED THERAPY AND JUST COMPLETED LAST WEEKLY DOSE)
     Route: 058
     Dates: end: 20201204

REACTIONS (3)
  - Psoriatic arthropathy [Unknown]
  - Osteoarthritis [Unknown]
  - Off label use [Unknown]
